FAERS Safety Report 4897077-6 (Version None)
Quarter: 2005Q4

REPORT INFORMATION
  Report Type: 
  Country: None (occurrence: None)
  Receive Date: 20051228
  Receipt Date: 20050825
  Transmission Date: 20060501
  Serious: Yes (Hospitalization)
  Sender: FDA-Public Use
  Company Number: USA0508106528

PATIENT
  Sex: Male

DRUGS (6)
  1. INSULIN [Suspect]
     Indication: DIABETES MELLITUS
  2. HUMULIN R [Suspect]
     Indication: DIABETES MELLITUS
  3. HUMULIN N [Suspect]
     Indication: DIABETES MELLITUS
  4. HUMULIN R [Suspect]
     Indication: DIABETES MELLITUS
  5. ILETIN [Suspect]
     Indication: DIABETES MELLITUS
  6. ILETIN [Suspect]
     Indication: DIABETES MELLITUS

REACTIONS (4)
  - BLOOD GLUCOSE INCREASED [None]
  - EYE OPERATION [None]
  - MEMORY IMPAIRMENT [None]
  - ROAD TRAFFIC ACCIDENT [None]
